FAERS Safety Report 25173606 (Version 1)
Quarter: 2025Q2

REPORT INFORMATION
  Report Type: Spontaneous
  Country: BG (occurrence: BG)
  Receive Date: 20250408
  Receipt Date: 20250408
  Transmission Date: 20250717
  Serious: Yes (Hospitalization, Other)
  Sender: SANOFI AVENTIS
  Company Number: BG-SA-2025SA097924

PATIENT
  Age: 69 Year
  Sex: Male

DRUGS (5)
  1. CLOPIDOGREL BISULFATE [Suspect]
     Active Substance: CLOPIDOGREL BISULFATE
     Dosage: 75 MG, QD (1X1)
  2. ROSUVASTATIN [Concomitant]
     Active Substance: ROSUVASTATIN
     Dosage: 20 MG, QD (1X1)
  3. PERINDOPRIL [Concomitant]
     Active Substance: PERINDOPRIL
  4. INDAPAMIDE [Concomitant]
     Active Substance: INDAPAMIDE
  5. AMLODIPINE [Concomitant]
     Active Substance: AMLODIPINE BESYLATE
     Dosage: 5 MG, QD (1X1)

REACTIONS (10)
  - Aortic aneurysm [Recovering/Resolving]
  - Abdominal pain [Recovering/Resolving]
  - Stent-graft endoleak [Recovering/Resolving]
  - Decreased appetite [Recovering/Resolving]
  - Disease progression [Recovering/Resolving]
  - Vascular pseudoaneurysm [Recovering/Resolving]
  - Limb mass [Recovering/Resolving]
  - Pain in extremity [Recovering/Resolving]
  - Hypoaesthesia [Recovering/Resolving]
  - Aneurysm thrombosis [Unknown]
